FAERS Safety Report 21165260 (Version 4)
Quarter: 2022Q4

REPORT INFORMATION
  Report Type: Spontaneous
  Country: JP (occurrence: JP)
  Receive Date: 20220803
  Receipt Date: 20221017
  Transmission Date: 20230112
  Serious: Yes (Hospitalization, Other)
  Sender: FDA-Public Use
  Company Number: JP-ASTELLAS-2022JP011647

PATIENT
  Age: 79 Year
  Sex: Male

DRUGS (3)
  1. MIRABEGRON [Suspect]
     Active Substance: MIRABEGRON
     Indication: Hypertonic bladder
     Route: 048
  2. MIRABEGRON [Suspect]
     Active Substance: MIRABEGRON
     Route: 048
     Dates: start: 20211222, end: 20211223
  3. MIRABEGRON [Suspect]
     Active Substance: MIRABEGRON
     Route: 048
     Dates: start: 20211229

REACTIONS (5)
  - Small intestine ulcer [Recovered/Resolved]
  - Ileus paralytic [Unknown]
  - Pneumatosis intestinalis [Unknown]
  - Intestinal obstruction [Unknown]
  - Peptic ulcer [Unknown]

NARRATIVE: CASE EVENT DATE: 20211215
